FAERS Safety Report 10247296 (Version 1)
Quarter: 2014Q2

REPORT INFORMATION
  Report Type: Spontaneous
  Country: IN (occurrence: IN)
  Receive Date: 20140619
  Receipt Date: 20140619
  Transmission Date: 20141212
  Serious: Yes (Death)
  Sender: FDA-Public Use
  Company Number: IN-VIIV HEALTHCARE LIMITED-B1005580A

PATIENT
  Sex: Male

DRUGS (3)
  1. LAMIVUDINE-HIV [Suspect]
     Indication: HIV INFECTION
     Route: 065
  2. ZIDOVUDINE [Suspect]
     Indication: HIV INFECTION
     Route: 065
  3. EFAVIRENZ [Suspect]
     Indication: HIV INFECTION
     Route: 065

REACTIONS (7)
  - Gynaecomastia [Unknown]
  - Breast mass [Unknown]
  - B-cell lymphoma [Unknown]
  - Sepsis [Unknown]
  - Disease progression [Unknown]
  - Multi-organ failure [Unknown]
  - Death [Fatal]
